FAERS Safety Report 16913564 (Version 3)
Quarter: 2024Q1

REPORT INFORMATION
  Report Type: Spontaneous
  Country: GB (occurrence: GB)
  Receive Date: 20191014
  Receipt Date: 20240103
  Transmission Date: 20240409
  Serious: Yes (Disabling, Other)
  Sender: FDA-Public Use
  Company Number: None

PATIENT
  Age: 76 Year
  Sex: Male

DRUGS (14)
  1. AMLODIPINE [Suspect]
     Active Substance: AMLODIPINE BESYLATE
     Indication: Product used for unknown indication
     Dosage: EACH MORNING, 10 MG, QD
     Route: 048
  2. ATORVASTATIN [Suspect]
     Active Substance: ATORVASTATIN
     Indication: Prophylaxis
     Dosage: AT NIGHT, 80 MG, QD
     Route: 048
  3. SPIRONOLACTONE [Suspect]
     Active Substance: SPIRONOLACTONE
     Indication: Ejection fraction decreased
     Dosage: EACH MORNING, 25 MG, QD
     Route: 048
  4. DOXAZOSIN [Suspect]
     Active Substance: DOXAZOSIN MESYLATE
     Indication: Hypertension
     Dosage: EACH MORNING, 4 MG, QD
     Route: 048
  5. SILDENAFIL CITRATE [Suspect]
     Active Substance: SILDENAFIL CITRATE
     Indication: Pulmonary hypertension
     Dosage: 75 MG, QD
     Route: 048
  6. LANSOPRAZOLE [Suspect]
     Active Substance: LANSOPRAZOLE
     Indication: Product used for unknown indication
     Dosage: EACH MORNING, 30 MG, QD
     Route: 048
  7. CARVEDILOL [Suspect]
     Active Substance: CARVEDILOL
     Indication: Ejection fraction decreased
     Dosage: 6.25 MG, QD
     Route: 048
  8. FERROUS SULFATE [Suspect]
     Active Substance: FERROUS SULFATE
     Indication: Haemoglobin decreased
     Dosage: 600 MG, QD
     Route: 048
  9. APIXABAN [Suspect]
     Active Substance: APIXABAN
     Indication: Atrial fibrillation
     Dosage: 10 MG, QD
     Route: 048
  10. LANOLIN\LIGHT MINERAL OIL\PARAFFIN [Suspect]
     Active Substance: LANOLIN\LIGHT MINERAL OIL\PARAFFIN
     Indication: Product used for unknown indication
     Dosage: APPLY
     Route: 061
  11. POTASSIUM BICARBONATE\POTASSIUM CHLORIDE [Suspect]
     Active Substance: POTASSIUM BICARBONATE\POTASSIUM CHLORIDE
     Indication: Blood potassium decreased
     Dosage: 2 DOSAGE FORM, ONCE A DAY
     Route: 048
  12. BUMETANIDE [Suspect]
     Active Substance: BUMETANIDE
     Indication: Hypervolaemia
     Dosage: 2MG EACH MORNING AND 1MG BEFORE LUNCH, 3 MG, QD
     Route: 048
  13. LANOLIN\LIGHT MINERAL OIL\PARAFFIN [Suspect]
     Active Substance: LANOLIN\LIGHT MINERAL OIL\PARAFFIN
     Indication: Product used for unknown indication
     Dosage: APPLY
     Route: 061
  14. POTASSIUM BICARBONATE\POTASSIUM CHLORIDE [Suspect]
     Active Substance: POTASSIUM BICARBONATE\POTASSIUM CHLORIDE
     Indication: Blood potassium decreased
     Dosage: 2 DOSAGE FORM, ONCE A DAY
     Route: 048

REACTIONS (4)
  - Rash [Not Recovered/Not Resolved]
  - Intentional product use issue [Unknown]
  - Pain [Not Recovered/Not Resolved]
  - Drug abuse [Unknown]
